FAERS Safety Report 10036336 (Version 1)
Quarter: 2014Q1

REPORT INFORMATION
  Report Type: Spontaneous
  Country: DK (occurrence: FR)
  Receive Date: 20140325
  Receipt Date: 20140325
  Transmission Date: 20141002
  Serious: Yes (Hospitalization)
  Sender: FDA-Public Use
  Company Number: FR-FRI-1000065767

PATIENT
  Age: 94 Year
  Sex: Female

DRUGS (7)
  1. ESCITALOPRAM [Suspect]
     Dosage: 10 MG
     Route: 048
  2. KARDEGIC [Suspect]
     Dosage: 75 MG
     Route: 048
     Dates: end: 20131112
  3. KARDEGIC [Suspect]
     Dosage: 75 MG
     Route: 048
     Dates: start: 20131114
  4. HYDREA [Concomitant]
     Dosage: 1 CAPSULE AT DAY 1 AND 2 CAPSULES AT DAY 2
     Route: 048
  5. PARIET [Concomitant]
     Dosage: 10 MG
     Route: 048
  6. LYSANXIA [Concomitant]
     Route: 048
  7. DOLIPRANE [Concomitant]
     Dosage: 1 TO 3 GRAMS DAILY
     Route: 048

REACTIONS (3)
  - Epistaxis [Recovered/Resolved]
  - Traumatic haematoma [Recovered/Resolved]
  - Drug interaction [Recovered/Resolved]
